FAERS Safety Report 6899698-8 (Version None)
Quarter: 2010Q3

REPORT INFORMATION
  Report Type: 
  Country: None (occurrence: None)
  Receive Date: 20100803
  Receipt Date: 20100722
  Transmission Date: 20110219
  Serious: Yes (Hospitalization, Other)
  Sender: FDA-Public Use
  Company Number: US-RANBAXY-2010US-36246

PATIENT

DRUGS (6)
  1. VERAPAMIL [Suspect]
     Dosage: UNK
     Route: 048
  2. DIAZEPAM [Suspect]
     Indication: ILL-DEFINED DISORDER
     Dosage: UNK
     Route: 048
  3. CLONAZEPAM [Suspect]
     Indication: ILL-DEFINED DISORDER
     Dosage: UNK
     Route: 048
  4. QUETIAPINE [Suspect]
     Indication: ILL-DEFINED DISORDER
     Dosage: UNK
     Route: 048
  5. TEMAZEPAM [Suspect]
     Indication: ILL-DEFINED DISORDER
     Dosage: UNK
     Route: 048
  6. DOXEPIN HCL [Suspect]
     Indication: ILL-DEFINED DISORDER
     Dosage: UNK, UNK
     Route: 048

REACTIONS (9)
  - ABDOMINAL DISTENSION [None]
  - ATRIOVENTRICULAR BLOCK FIRST DEGREE [None]
  - BLOOD GLUCOSE INCREASED [None]
  - CARDIAC ARREST [None]
  - DEPRESSION [None]
  - EJECTION FRACTION DECREASED [None]
  - GENERAL PHYSICAL HEALTH DETERIORATION [None]
  - OVERDOSE [None]
  - SUBENDOCARDIAL ISCHAEMIA [None]
